FAERS Safety Report 8379585-9 (Version None)
Quarter: 2012Q2

REPORT INFORMATION
  Report Type: 
  Country: None (occurrence: None)
  Receive Date: 20120523
  Receipt Date: 20120516
  Transmission Date: 20120825
  Serious: Yes (Death, Other)
  Sender: FDA-Public Use
  Company Number: CN-JNJFOC-20120502956

PATIENT
  Sex: Male
  Weight: 50 kg

DRUGS (1)
  1. ITRACONAZOLE [Suspect]
     Indication: INFECTION
     Route: 042
     Dates: start: 20110414, end: 20110423

REACTIONS (2)
  - LIVER INJURY [None]
  - DEATH [None]
